FAERS Safety Report 15783864 (Version 2)
Quarter: 2019Q1

REPORT INFORMATION
  Report Type: Spontaneous
  Country: US (occurrence: US)
  Receive Date: 20190102
  Receipt Date: 20190201
  Transmission Date: 20190417
  Serious: No
  Sender: FDA-Public Use
  Company Number: US-ASTRAZENECA-2018SF62359

PATIENT
  Age: 64 Year
  Sex: Female
  Weight: 97.5 kg

DRUGS (5)
  1. BYDUREON [Suspect]
     Active Substance: EXENATIDE
     Dosage: SDT
     Route: 065
  2. BYDUREON [Suspect]
     Active Substance: EXENATIDE
     Dosage: UNKNOWN
     Route: 065
  3. WARFARIN [Concomitant]
     Active Substance: WARFARIN
     Indication: HYPERTROPHIC CARDIOMYOPATHY
     Dosage: 4 MG PO DAILY FOR 6 DAYS AND 2 MG PO DAILY FOR 1 DAY
     Route: 048
  4. BYETTA [Suspect]
     Active Substance: EXENATIDE
     Dosage: UNKNOWN
     Route: 065
  5. BYDUREON BCISE [Suspect]
     Active Substance: EXENATIDE
     Indication: TYPE 2 DIABETES MELLITUS
     Route: 058

REACTIONS (2)
  - Wrong technique in product usage process [Unknown]
  - Injection site bruising [Recovered/Resolved with Sequelae]
